FAERS Safety Report 18060893 (Version 1)
Quarter: 2020Q3

REPORT INFORMATION
  Report Type: Spontaneous
  Country: DK (occurrence: DK)
  Receive Date: 20200723
  Receipt Date: 20200723
  Transmission Date: 20201103
  Serious: Yes (Other)
  Sender: FDA-Public Use
  Company Number: NVSC2020DK199444

PATIENT
  Age: 51 Year
  Sex: Female

DRUGS (3)
  1. EPIRUBICIN [Suspect]
     Active Substance: EPIRUBICIN
     Indication: BREAST CANCER
     Dosage: UNK (DOSIS: EJ ANGIVET. MODTAGET 3 SERIER STYRKE: EJ ANGIVER)
     Route: 065
     Dates: start: 2015, end: 2015
  2. CYCLOPHOSPHAMIDE. [Suspect]
     Active Substance: CYCLOPHOSPHAMIDE
     Indication: BREAST CANCER
     Dosage: UNK (FORM OG ROUTE EJ ANGIVET. GIVET SAMMEN MED CYCLOPHOSPHAMIDE)
     Route: 065
     Dates: start: 2015, end: 2015
  3. DOCETAXEL. [Suspect]
     Active Substance: DOCETAXEL
     Indication: BREAST CANCER
     Dosage: UNK
     Route: 065
     Dates: start: 2015, end: 201512

REACTIONS (6)
  - Arthralgia [Recovered/Resolved]
  - Neuropathy peripheral [Not Recovered/Not Resolved]
  - Myalgia [Recovered/Resolved]
  - Paraesthesia [Not Recovered/Not Resolved]
  - Arthralgia [Unknown]
  - Pain in extremity [Not Recovered/Not Resolved]

NARRATIVE: CASE EVENT DATE: 2015
